FAERS Safety Report 14588916 (Version 1)
Quarter: 2018Q1

REPORT INFORMATION
  Report Type: Spontaneous
  Country: US (occurrence: US)
  Receive Date: 20180301
  Receipt Date: 20180301
  Transmission Date: 20180509
  Serious: No
  Sender: FDA-Public Use
  Company Number: US-BAUSCH-BL-2017-030449

PATIENT
  Age: 77 Year
  Sex: Female
  Weight: 104.42 kg

DRUGS (1)
  1. EDECRIN [Suspect]
     Active Substance: ETHACRYNIC ACID
     Indication: OEDEMA
     Route: 065

REACTIONS (1)
  - Drug ineffective [Unknown]
